FAERS Safety Report 4427853-5 (Version None)
Quarter: 2004Q3

REPORT INFORMATION
  Report Type: 
  Country: None (occurrence: None)
  Receive Date: 20040812
  Receipt Date: 20040730
  Transmission Date: 20050211
  Serious: Yes (Death, Life-Threatening)
  Sender: FDA-Public Use
  Company Number: 2004AP03948

PATIENT
  Age: 59 Year
  Sex: Male
  Weight: 59 kg

DRUGS (2)
  1. DIPRIVAN [Suspect]
     Dosage: 150 MG DAILY IV
     Route: 042
  2. MUSCULAX [Suspect]
     Dosage: 8 MG DAILY IV
     Route: 042

REACTIONS (5)
  - ANOXIA [None]
  - BRAIN DEATH [None]
  - HYPOVENTILATION [None]
  - HYPOXIC ENCEPHALOPATHY [None]
  - LARYNGEAL OEDEMA [None]
